FAERS Safety Report 12159011 (Version 1)
Quarter: 2016Q1

REPORT INFORMATION
  Report Type: Spontaneous
  Country: TW (occurrence: TW)
  Receive Date: 20160308
  Receipt Date: 20160308
  Transmission Date: 20160526
  Serious: Yes (Other)
  Sender: FDA-Public Use
  Company Number: TW-AMGEN-TWNSP2016014341

PATIENT
  Age: 43 Year
  Sex: Male

DRUGS (1)
  1. ENBREL [Suspect]
     Active Substance: ETANERCEPT
     Indication: PSORIATIC ARTHROPATHY
     Dosage: 50 MG, WEEKLY
     Route: 058
     Dates: start: 20150603, end: 20160217

REACTIONS (5)
  - C-reactive protein increased [Unknown]
  - Productive cough [Unknown]
  - Body temperature increased [Unknown]
  - Sputum purulent [Unknown]
  - Red blood cell sedimentation rate increased [Unknown]

NARRATIVE: CASE EVENT DATE: 2016
